FAERS Safety Report 6250349-5 (Version None)
Quarter: 2009Q2

REPORT INFORMATION
  Report Type: 
  Country: None (occurrence: None)
  Receive Date: 20090626
  Receipt Date: 20090626
  Transmission Date: 20091009
  Serious: Yes (Hospitalization)
  Sender: FDA-Public Use
  Company Number: None

PATIENT
  Age: 52 Year
  Sex: Female
  Weight: 73 kg

DRUGS (14)
  1. TARCEVA [Suspect]
     Indication: LUNG NEOPLASM MALIGNANT
     Dosage: 100MG DAILY ORAL
     Route: 048
     Dates: start: 20080723, end: 20090522
  2. AVASTIN [Suspect]
     Indication: LUNG NEOPLASM MALIGNANT
     Dosage: 15MG/KG, EVERY 21 DAYS,IV
     Route: 042
     Dates: start: 20080723, end: 20090508
  3. HYDROCHLORATHIAZIDE [Concomitant]
  4. ATENOLOL [Concomitant]
  5. AMBIEN [Concomitant]
  6. LORAZEPAM [Concomitant]
  7. LOVENOX [Concomitant]
  8. MINICYCLINE [Concomitant]
  9. FENTANYL [Concomitant]
  10. ZOFRAN [Concomitant]
  11. PHENERGAN [Concomitant]
  12. LORTAB [Concomitant]
  13. TRANSFER-4-LIFE OTC* [Concomitant]
  14. PLUS VITAMIN OTC* [Concomitant]

REACTIONS (7)
  - BLOOD PRESSURE INCREASED [None]
  - BREATH SOUNDS ABNORMAL [None]
  - HEART RATE INCREASED [None]
  - NAUSEA [None]
  - PANCREATITIS ACUTE [None]
  - TACHYCARDIA [None]
  - VOMITING [None]
